FAERS Safety Report 4373862-4 (Version None)
Quarter: 2004Q2

REPORT INFORMATION
  Report Type: 
  Country: None (occurrence: None)
  Receive Date: 20040604
  Receipt Date: 20040519
  Transmission Date: 20050107
  Serious: Yes (Death)
  Sender: FDA-Public Use
  Company Number: DSA_70246_2004

PATIENT
  Age: 83 Year
  Sex: Female
  Weight: 34 kg

DRUGS (8)
  1. ROXANOL [Suspect]
     Indication: AGITATION
     Dosage: 0.1 ML ONCE SL
     Route: 060
     Dates: start: 20030705, end: 20030705
  2. ROXANOL [Suspect]
     Indication: ANXIETY
     Dosage: 0.1 ML ONCE SL
     Route: 060
     Dates: start: 20030705, end: 20030705
  3. ROXANOL [Suspect]
     Indication: DYSPNOEA
     Dosage: 0.1 ML ONCE SL
     Route: 060
     Dates: start: 20030705, end: 20030705
  4. ATIVAN [Suspect]
     Indication: ANXIETY
     Dosage: 1 MG PRN NC
     Dates: start: 20030622
  5. ATIVAN [Suspect]
     Indication: ANXIETY
     Dosage: 0.5 MG Q4HR NC
     Dates: start: 20030614, end: 20030623
  6. DETROL [Concomitant]
  7. LASIX [Concomitant]
  8. METOPROLOL TARTRATE [Concomitant]

REACTIONS (11)
  - BREATH SOUNDS DECREASED [None]
  - CHOKING [None]
  - CYANOSIS [None]
  - DYSPHAGIA [None]
  - HEART RATE INCREASED [None]
  - JUGULAR VEIN DISTENSION [None]
  - MEDICATION ERROR [None]
  - RALES [None]
  - REFUSAL OF TREATMENT BY PATIENT [None]
  - RESPIRATORY ARREST [None]
  - RESPIRATORY DISTRESS [None]
